FAERS Safety Report 12482038 (Version 1)
Quarter: 2016Q2

REPORT INFORMATION
  Report Type: Spontaneous
  Country: US (occurrence: US)
  Receive Date: 20160620
  Receipt Date: 20160620
  Transmission Date: 20160815
  Serious: No
  Sender: FDA-Public Use
  Company Number: US-TRIS PHARMA, INC.-1054059

PATIENT
  Age: 58 Year
  Sex: Female
  Weight: 54.42 kg

DRUGS (1)
  1. DEXTROMETHORPHAN POLISTIREX ER OS 6 MG/ML [Suspect]
     Active Substance: DEXTROMETHORPHAN HYDROBROMIDE
     Indication: COUGH
     Dates: start: 20150910, end: 20150912

REACTIONS (2)
  - No adverse event [None]
  - Expired product administered [None]

NARRATIVE: CASE EVENT DATE: 20150910
